FAERS Safety Report 13865945 (Version 11)
Quarter: 2018Q2

REPORT INFORMATION
  Report Type: Spontaneous
  Country: US (occurrence: US)
  Receive Date: 20170814
  Receipt Date: 20180409
  Transmission Date: 20180711
  Serious: Yes (Death, Congenital Anomaly, Other)
  Sender: FDA-Public Use
  Company Number: PHEH2017US025211

PATIENT
  Sex: Male

DRUGS (1)
  1. ZOFRAN [Suspect]
     Active Substance: ONDANSETRON HYDROCHLORIDE
     Indication: FOETAL EXPOSURE DURING PREGNANCY
     Dosage: MOTHER^S DOSE: 4 MG, PRN
     Route: 064

REACTIONS (86)
  - Cardiac failure congestive [Fatal]
  - Brain malformation [Unknown]
  - Congenital central nervous system anomaly [Unknown]
  - Cerebellar hypoplasia [Unknown]
  - Congenital hydrocephalus [Unknown]
  - Epilepsy [Unknown]
  - Takayasu^s arteritis [Unknown]
  - Otitis media acute [Unknown]
  - Shunt malfunction [Unknown]
  - Patent ductus arteriosus [Unknown]
  - Tricuspid valve incompetence [Unknown]
  - Foetal exposure during pregnancy [Unknown]
  - Muscle spasms [Unknown]
  - Hypoacusis [Unknown]
  - Dyspnoea [Unknown]
  - Tachypnoea [Unknown]
  - Respiratory failure [Fatal]
  - Atrial septal defect [Recovered/Resolved]
  - Laevocardia [Unknown]
  - Heart disease congenital [Unknown]
  - Deafness [Unknown]
  - Apnoea [Unknown]
  - Status epilepticus [Unknown]
  - Bronchiolitis [Unknown]
  - Hypothermia [Unknown]
  - Right ventricular hypertrophy [Unknown]
  - Mitral valve incompetence [Unknown]
  - Hyperbilirubinaemia neonatal [Unknown]
  - Anxiety [Unknown]
  - Cerebral infarction foetal [Fatal]
  - Ventricular septal defect [Recovered/Resolved]
  - Hydrocele [Unknown]
  - Perinatal stroke [Unknown]
  - Developmental delay [Unknown]
  - Injury [Unknown]
  - Poor feeding infant [Unknown]
  - Nasal congestion [Unknown]
  - Gait inability [Unknown]
  - Hypotonia [Unknown]
  - Cardiac aneurysm [Unknown]
  - Cerebral ventricle dilatation [Unknown]
  - Encephalomalacia [Unknown]
  - Foetal growth restriction [Unknown]
  - Facial paralysis [Unknown]
  - Seizure [Not Recovered/Not Resolved]
  - Dilatation ventricular [Unknown]
  - Otitis media [Unknown]
  - Dysphagia [Unknown]
  - Wheezing [Unknown]
  - Oral candidiasis [Unknown]
  - Atelectasis [Unknown]
  - Left-to-right cardiac shunt [Unknown]
  - Cardiomegaly [Unknown]
  - Congenital anomaly [Unknown]
  - Premature baby [Unknown]
  - Respiratory distress [Unknown]
  - Pleural effusion [Unknown]
  - Ventricular enlargement [Unknown]
  - Oliguria [Unknown]
  - Urinary tract infection [Unknown]
  - Gastrooesophageal reflux disease [Unknown]
  - Mucocutaneous candidiasis [Unknown]
  - Dermatitis [Unknown]
  - Constipation [Unknown]
  - Visual impairment [Unknown]
  - Speech disorder [Unknown]
  - Hypoxic-ischaemic encephalopathy [Fatal]
  - Microcephaly [Unknown]
  - Urinary retention [Unknown]
  - Hypoxia [Unknown]
  - Cough [Unknown]
  - Nasal septum deviation [Unknown]
  - Muscle spasticity [Unknown]
  - Upper respiratory tract infection [Unknown]
  - Irritability [Unknown]
  - Peripheral swelling [Unknown]
  - Generalised oedema [Unknown]
  - Arteriovenous malformation [Unknown]
  - Meningitis [Unknown]
  - Pseudomeningocele [Unknown]
  - Pneumonia [Unknown]
  - Device related infection [Unknown]
  - Umbilical cord abnormality [Unknown]
  - Asthenia [Unknown]
  - Eye disorder [Unknown]
  - Pleural thickening [Unknown]

NARRATIVE: CASE EVENT DATE: 20150426
